FAERS Safety Report 24713226 (Version 1)
Quarter: 2024Q4

REPORT INFORMATION
  Report Type: Spontaneous
  Country: US (occurrence: US)
  Receive Date: 20241209
  Receipt Date: 20241209
  Transmission Date: 20250115
  Serious: No
  Sender: REGENERON
  Company Number: US-REGENERON PHARMACEUTICALS, INC.-2023-149229

PATIENT
  Age: 92 Year
  Sex: Male

DRUGS (1)
  1. EYLEA [Suspect]
     Active Substance: AFLIBERCEPT
     Indication: Macular degeneration
     Dosage: 1 INJECTION ONCE A MONTH INTO THE LEFT EYE (FORMULATION: UNKNOWN)
     Dates: start: 202309

REACTIONS (3)
  - Visual impairment [Unknown]
  - Eye irritation [Unknown]
  - Swelling of eyelid [Unknown]

NARRATIVE: CASE EVENT DATE: 20230101
